FAERS Safety Report 18842492 (Version 1)
Quarter: 2021Q1

REPORT INFORMATION
  Report Type: Spontaneous
  Country: US (occurrence: US)
  Receive Date: 20210203
  Receipt Date: 20210203
  Transmission Date: 20210419
  Serious: No
  Sender: FDA-Public Use
  Company Number: US-BAYER-2021-050496

PATIENT
  Sex: Female

DRUGS (3)
  1. ALKA?SELTZER PLUS MAXIMUM STRENGTH COUGH AND MUCUS DM [Suspect]
     Active Substance: DEXTROMETHORPHAN HYDROBROMIDE\GUAIFENESIN
     Indication: ALLERGIC RESPIRATORY SYMPTOM
     Dosage: 1 TABLET EVERY 12 HOURS
     Route: 048
     Dates: end: 20210102
  2. VITAMINS NOS [Concomitant]
     Active Substance: VITAMINS
  3. ALKA?SELTZER PLUS MAXIMUM STRENGTH COUGH AND MUCUS DM [Suspect]
     Active Substance: DEXTROMETHORPHAN HYDROBROMIDE\GUAIFENESIN
     Indication: NASOPHARYNGITIS

REACTIONS (1)
  - Insomnia [Unknown]
